FAERS Safety Report 17170443 (Version 1)
Quarter: 2019Q4

REPORT INFORMATION
  Report Type: Spontaneous
  Country: SE (occurrence: SE)
  Receive Date: 20191218
  Receipt Date: 20191218
  Transmission Date: 20200122
  Serious: Yes (Hospitalization, Other)
  Sender: FDA-Public Use
  Company Number: SE-PFIZER INC-2019538588

PATIENT
  Sex: Male

DRUGS (5)
  1. OXAZEPAM. [Suspect]
     Active Substance: OXAZEPAM
     Dosage: UNK
     Dates: start: 20180905, end: 20180905
  2. THERALEN [Suspect]
     Active Substance: TRIMEPRAZINE
     Dosage: UNK
     Dates: start: 20180925, end: 20180925
  3. XANOR [Suspect]
     Active Substance: ALPRAZOLAM
     Dosage: UNK
     Dates: start: 20180925, end: 20180925
  4. PROPAVAN [Suspect]
     Active Substance: PROPIOMAZINE
     Dosage: UNK
     Route: 048
     Dates: start: 20180925, end: 20180925
  5. OLANZAPINE. [Suspect]
     Active Substance: OLANZAPINE
     Dosage: UNK
     Dates: start: 20180905, end: 20180905

REACTIONS (4)
  - Intentional self-injury [Unknown]
  - Depressed level of consciousness [Unknown]
  - Tachycardia [Unknown]
  - Intentional overdose [Unknown]

NARRATIVE: CASE EVENT DATE: 20180905
